FAERS Safety Report 7623207-9 (Version None)
Quarter: 2011Q3

REPORT INFORMATION
  Report Type: 
  Country: None (occurrence: None)
  Receive Date: 20110720
  Receipt Date: 20110715
  Transmission Date: 20111222
  Serious: Yes (Death)
  Sender: FDA-Public Use
  Company Number: PHHY2010ZA79935

PATIENT
  Sex: Male

DRUGS (4)
  1. NEXAVAR [Concomitant]
     Dosage: UNK UKN, UNK
  2. ZOMETA [Suspect]
     Dosage: 04 MG, UNK
  3. PHARMAPRESS [Concomitant]
     Dosage: UNK UKN, UNK
  4. CLINDAMYCIN HCL [Concomitant]
     Dosage: UNK UKN, UNK

REACTIONS (1)
  - DEATH [None]
